FAERS Safety Report 25384403 (Version 2)
Quarter: 2025Q2

REPORT INFORMATION
  Report Type: Spontaneous
  Country: HR (occurrence: HR)
  Receive Date: 20250602
  Receipt Date: 20250610
  Transmission Date: 20250716
  Serious: No
  Sender: BAYER HEALTHCARE PHARMACEUTICALS INC.
  Company Number: HR-BAYER-2025A070147

PATIENT
  Age: 74 Year

DRUGS (1)
  1. KERENDIA [Suspect]
     Active Substance: FINERENONE
     Indication: Renal disorder

REACTIONS (1)
  - Product prescribing issue [None]
